FAERS Safety Report 9050976 (Version 4)
Quarter: 2013Q1

REPORT INFORMATION
  Report Type: Spontaneous
  Country: FR (occurrence: FR)
  Receive Date: 20130205
  Receipt Date: 20130325
  Transmission Date: 20140127
  Serious: Yes (Death, Hospitalization)
  Sender: FDA-Public Use
  Company Number: FR-PFIZER INC-2013040740

PATIENT
  Age: 75 Year
  Sex: Female

DRUGS (8)
  1. NOVATREX [Suspect]
     Dosage: 2.5 MG, WEEKLY
     Route: 048
     Dates: start: 20121025, end: 20121119
  2. VFEND [Suspect]
     Dosage: 200 MG, 2X/DAY
     Route: 048
     Dates: start: 20120925, end: 20121119
  3. ZELITREX [Suspect]
     Dosage: 500 MG, 2X/DAY
     Route: 048
     Dates: start: 20120908, end: 20121119
  4. PURINETHOL [Suspect]
     Dosage: 50 MG, 2X/DAY
     Route: 048
     Dates: start: 20121025, end: 20121119
  5. METFORMIN [Concomitant]
     Dosage: 850 MG, 1X/DAY
     Route: 048
     Dates: end: 20121119
  6. PENTACARINAT [Concomitant]
     Dosage: UNK
     Route: 048
     Dates: end: 20121119
  7. NOVORAPID [Concomitant]
     Dosage: UNK
     Route: 058
     Dates: end: 20121119
  8. EUPANTOL [Concomitant]
     Dosage: 40 MG, 1X/DAY
     Route: 048
     Dates: end: 20121119

REACTIONS (3)
  - Hepatitis acute [Fatal]
  - Hepatocellular injury [Fatal]
  - Jaundice [Fatal]
